FAERS Safety Report 24618157 (Version 4)
Quarter: 2025Q2

REPORT INFORMATION
  Report Type: Report from Study
  Country: CA (occurrence: CA)
  Receive Date: 20241114
  Receipt Date: 20250519
  Transmission Date: 20250717
  Serious: Yes (Hospitalization, Other)
  Sender: JOHNSON AND JOHNSON
  Company Number: CA-JNJFOC-20241126214

PATIENT
  Age: 84 Year
  Sex: Male

DRUGS (1)
  1. REMICADE [Suspect]
     Active Substance: INFLIXIMAB
     Indication: Colitis ulcerative
     Route: 041
     Dates: start: 20170831

REACTIONS (9)
  - Chills [Recovered/Resolved]
  - Cardiac disorder [Unknown]
  - Respiratory rate increased [Recovered/Resolved]
  - Infusion related reaction [Recovered/Resolved]
  - Colitis ulcerative [Unknown]
  - Feeling cold [Unknown]
  - Drug specific antibody [Unknown]
  - Poor venous access [Unknown]
  - Infusion site extravasation [Unknown]
